FAERS Safety Report 10380356 (Version 2)
Quarter: 2014Q3

REPORT INFORMATION
  Report Type: Spontaneous
  Country: US (occurrence: US)
  Receive Date: 20140813
  Receipt Date: 20140822
  Transmission Date: 20150326
  Serious: Yes (Death, Hospitalization)
  Sender: FDA-Public Use
  Company Number: US-AMGEN-USASP2014060377

PATIENT
  Age: 91 Year
  Sex: Male
  Weight: 67.57 kg

DRUGS (1)
  1. PROLIA [Suspect]
     Active Substance: DENOSUMAB
     Indication: OSTEOPOROSIS
     Dosage: UNK
     Route: 065
     Dates: start: 20130122

REACTIONS (3)
  - Blood pressure increased [Fatal]
  - Renal failure chronic [Fatal]
  - Arteriosclerosis [Fatal]
